FAERS Safety Report 9397183 (Version 4)
Quarter: 2014Q4

REPORT INFORMATION
  Report Type: Report from Study
  Country: RU (occurrence: RU)
  Receive Date: 20130712
  Receipt Date: 20141016
  Transmission Date: 20150529
  Serious: Yes (Hospitalization)
  Sender: FDA-Public Use
  Company Number: PHHO2013RU004217

PATIENT
  Age: 67 Year
  Sex: Male
  Weight: 77 kg

DRUGS (7)
  1. OMEPRAZOLE. [Concomitant]
     Active Substance: OMEPRAZOLE
     Indication: GASTRITIS
     Dosage: 20.0 MG, UNK
     Dates: start: 20130313
  2. TORASEMIDE [Concomitant]
     Active Substance: TORSEMIDE
     Indication: CARDIAC FAILURE CHRONIC
     Dosage: 5.0 MG, UNK
     Dates: start: 201111
  3. ALISKIREN [Suspect]
     Active Substance: ALISKIREN
     Indication: CARDIAC FAILURE
     Dosage: UNK
     Route: 048
     Dates: start: 20120326, end: 20130220
  4. WARFARIN [Concomitant]
     Active Substance: WARFARIN
     Indication: CARDIOVASCULAR DISORDER
     Dosage: 5.0 MG, UNK
     Dates: start: 201109
  5. DIGOXIN. [Concomitant]
     Active Substance: DIGOXIN
     Indication: CARDIAC FAILURE CHRONIC
     Dosage: 0.025 MG, UNK
     Dates: start: 200610
  6. BISOPROLOL [Concomitant]
     Active Substance: BISOPROLOL
     Indication: CARDIOVASCULAR DISORDER
     Dosage: 2.5 MG, UNK
     Dates: start: 201111
  7. HYPOTHIAZID [Concomitant]
     Indication: CARDIAC FAILURE CHRONIC
     Dosage: 25.0 MG, UNK
     Dates: start: 20130313, end: 20130321

REACTIONS (1)
  - Chronic hepatitis [Recovered/Resolved with Sequelae]

NARRATIVE: CASE EVENT DATE: 20130220
